FAERS Safety Report 20877249 (Version 1)
Quarter: 2022Q2

REPORT INFORMATION
  Report Type: Spontaneous
  Country: US (occurrence: None)
  Receive Date: 20220526
  Receipt Date: 20220526
  Transmission Date: 20220721
  Serious: Yes (Hospitalization)
  Sender: FDA-Public Use
  Company Number: None

PATIENT
  Age: 71 Year
  Sex: Male
  Weight: 105 kg

DRUGS (1)
  1. EMPAGLIFLOZIN [Suspect]
     Active Substance: EMPAGLIFLOZIN
     Indication: Diabetes mellitus
     Dosage: FREQUENCY : DAILY;?
     Route: 048
     Dates: start: 20200717, end: 20220225

REACTIONS (6)
  - Urinary tract infection [None]
  - Nephrolithiasis [None]
  - Cholecystitis [None]
  - Culture urine positive [None]
  - Nephrolithiasis [None]
  - Therapy interrupted [None]

NARRATIVE: CASE EVENT DATE: 20220224
